FAERS Safety Report 20700262 (Version 2)
Quarter: 2022Q3

REPORT INFORMATION
  Report Type: Report from Study
  Country: CZ (occurrence: CZ)
  Receive Date: 20220412
  Receipt Date: 20220727
  Transmission Date: 20221027
  Serious: Yes (Death, Life-Threatening, Hospitalization, Other)
  Sender: FDA-Public Use
  Company Number: CZ-RECRO GAINESVILLE LLC-REPH-2022-000005

PATIENT
  Age: 47 Year
  Sex: Male

DRUGS (1)
  1. VERAPAMIL HYDROCHLORIDE [Suspect]
     Active Substance: VERAPAMIL HYDROCHLORIDE
     Indication: Product used for unknown indication
     Dosage: UNK, ONE TIME DOSE
     Route: 048

REACTIONS (9)
  - Toxicity to various agents [Fatal]
  - Intentional overdose [Fatal]
  - Cardio-respiratory arrest [Fatal]
  - Alkalosis hypochloraemic [Fatal]
  - Vomiting [Unknown]
  - Renal failure [Unknown]
  - Somnolence [Unknown]
  - Bradycardia [Unknown]
  - Hypotension [Unknown]
